FAERS Safety Report 21793006 (Version 1)
Quarter: 2022Q4

REPORT INFORMATION
  Report Type: Spontaneous
  Country: NP (occurrence: NP)
  Receive Date: 20221229
  Receipt Date: 20221229
  Transmission Date: 20230113
  Serious: Yes (Other)
  Sender: FDA-Public Use
  Company Number: NP-STRIDES ARCOLAB LIMITED-2022SP017540

PATIENT
  Age: 18 Year
  Sex: Female

DRUGS (3)
  1. ACETAZOLAMIDE [Suspect]
     Active Substance: ACETAZOLAMIDE
     Indication: Retinoschisis congenital
     Dosage: 500 MILLIGRAM, BID (TABLET)
     Route: 048
  2. DORZOLAMIDE [Concomitant]
     Active Substance: DORZOLAMIDE
     Indication: Retinoschisis congenital
     Dosage: UNK  (TWIC A DAY) (ROUTE-GTT )
     Route: 061
  3. DORZOLAMIDE [Concomitant]
     Active Substance: DORZOLAMIDE
     Dosage: UNK (MONOTHERAPY) (CONTINUED WITH DORZOLAMIDE FOR THE NEXT 6 MONTHS)
     Route: 065

REACTIONS (3)
  - Macular thickening [Recovered/Resolved]
  - Rebound effect [Recovered/Resolved]
  - Off label use [Unknown]
